FAERS Safety Report 8439422-0 (Version None)
Quarter: 2012Q2

REPORT INFORMATION
  Report Type: 
  Country: None (occurrence: None)
  Receive Date: 20120615
  Receipt Date: 20120612
  Transmission Date: 20120825
  Serious: No
  Sender: FDA-Public Use
  Company Number: US-PFIZER INC-2012141703

PATIENT
  Sex: Male

DRUGS (8)
  1. ZANTAC [Suspect]
     Dosage: UNK
  2. CIPROFLOXACIN [Suspect]
     Dosage: UNK
  3. METOPROLOL TARTRATE [Suspect]
     Dosage: UNK
  4. PAMELOR [Suspect]
     Dosage: UNK
  5. FELDENE [Suspect]
     Dosage: UNK
  6. METHOCARBAMOL [Suspect]
     Dosage: UNK
  7. ZETIA [Suspect]
     Dosage: UNK
  8. MOTRIN [Suspect]
     Dosage: UNK

REACTIONS (1)
  - DRUG HYPERSENSITIVITY [None]
